FAERS Safety Report 19374143 (Version 1)
Quarter: 2021Q2

REPORT INFORMATION
  Report Type: Spontaneous
  Country: NL (occurrence: NL)
  Receive Date: 20210603
  Receipt Date: 20210603
  Transmission Date: 20210717
  Serious: Yes (Disabling, Other)
  Sender: FDA-Public Use
  Company Number: NL-009507513-2105NLD007126

PATIENT
  Age: 80 Year
  Sex: Male

DRUGS (3)
  1. KEYTRUDA [Suspect]
     Active Substance: PEMBROLIZUMAB
     Indication: LUNG NEOPLASM MALIGNANT
     Dosage: UNK
     Dates: start: 2020, end: 20200716
  2. ALIMTA [Suspect]
     Active Substance: PEMETREXED DISODIUM
     Indication: LUNG NEOPLASM MALIGNANT
     Dosage: UNK
     Dates: start: 2020, end: 20200716
  3. CARBOPLATIN. [Suspect]
     Active Substance: CARBOPLATIN
     Indication: LUNG NEOPLASM MALIGNANT
     Dosage: UNK
     Dates: start: 2020

REACTIONS (15)
  - Aspartate aminotransferase abnormal [Unknown]
  - White blood cell count abnormal [Unknown]
  - Constipation [Unknown]
  - Gait disturbance [Recovering/Resolving]
  - Alanine aminotransferase abnormal [Unknown]
  - Creatinine renal clearance abnormal [Unknown]
  - Haemoglobin abnormal [Unknown]
  - Eastern Cooperative Oncology Group performance status worsened [Recovering/Resolving]
  - Thrombocytopenia [Unknown]
  - Therapy partial responder [Unknown]
  - Pruritus [Not Recovered/Not Resolved]
  - Back pain [Unknown]
  - Blood potassium abnormal [Unknown]
  - Dry mouth [Unknown]
  - Diarrhoea [Unknown]

NARRATIVE: CASE EVENT DATE: 202005
